FAERS Safety Report 12623477 (Version 2)
Quarter: 2020Q4

REPORT INFORMATION
  Report Type: Spontaneous
  Country: None (occurrence: PT)
  Receive Date: 20160804
  Receipt Date: 20201008
  Transmission Date: 20210113
  Serious: Yes (Hospitalization, Other)
  Sender: FDA-Public Use
  Company Number: PT-SA-2016SA138125

PATIENT
  Age: 63 Year
  Sex: Male

DRUGS (4)
  1. PREDNISOLONE. [Concomitant]
     Active Substance: PREDNISOLONE
     Indication: PROSTATE CANCER
     Dosage: 5 MG,BID
     Route: 065
  2. DOCETAXEL. [Suspect]
     Active Substance: DOCETAXEL
     Indication: PROSTATE CANCER
     Dosage: 75 MG/M2,QCY
     Route: 065
  3. AFLIBERCEPT [Concomitant]
     Active Substance: AFLIBERCEPT
     Indication: PROSTATE CANCER
     Dosage: UNK UNK,QCY
     Route: 065
  4. DOCETAXEL. [Suspect]
     Active Substance: DOCETAXEL
     Dosage: 75 MG/M2,QCY
     Route: 065

REACTIONS (8)
  - Septic shock [Unknown]
  - Respiratory disorder [Unknown]
  - Ocular toxicity [Unknown]
  - Neurotoxicity [Unknown]
  - Decreased appetite [Unknown]
  - Toxicity to various agents [Unknown]
  - Lacrimation increased [Unknown]
  - Cough [Unknown]
